FAERS Safety Report 8128238-0 (Version None)
Quarter: 2011Q4

REPORT INFORMATION
  Report Type: 
  Country: None (occurrence: None)
  Receive Date: 20111227
  Receipt Date: 20111121
  Transmission Date: 20120403
  Serious: No
  Sender: FDA-Public Use
  Company Number: PHEH2011US07313

PATIENT
  Age: 53 Year
  Sex: Female
  Weight: 97.5 kg

DRUGS (6)
  1. EFEXOR XR (VENLAFAXINE) [Concomitant]
  2. XANAX [Concomitant]
  3. GILENYA [Suspect]
     Indication: MULTIPLE SCLEROSIS
     Dosage: 0.5 MG, QD, ORAL
     Route: 048
     Dates: start: 20110622
  4. FLEXERIL [Concomitant]
  5. LISINOPRIL [Concomitant]
  6. VYVANSE [Concomitant]

REACTIONS (1)
  - ARTHRALGIA [None]
